FAERS Safety Report 25268728 (Version 1)
Quarter: 2025Q2

REPORT INFORMATION
  Report Type: Spontaneous
  Country: FR (occurrence: FR)
  Receive Date: 20250505
  Receipt Date: 20250505
  Transmission Date: 20250716
  Serious: Yes (Hospitalization)
  Sender: MYLAN
  Company Number: None

PATIENT
  Age: 93 Year
  Sex: Female

DRUGS (12)
  1. ETOPOSIDE [Suspect]
     Active Substance: ETOPOSIDE
     Indication: B-cell lymphoma
  2. ETOPOSIDE [Suspect]
     Active Substance: ETOPOSIDE
     Route: 042
  3. ETOPOSIDE [Suspect]
     Active Substance: ETOPOSIDE
     Route: 042
  4. ETOPOSIDE [Suspect]
     Active Substance: ETOPOSIDE
  5. RITUXIMAB [Suspect]
     Active Substance: RITUXIMAB
     Indication: B-cell lymphoma
  6. RITUXIMAB [Suspect]
     Active Substance: RITUXIMAB
     Route: 042
  7. RITUXIMAB [Suspect]
     Active Substance: RITUXIMAB
     Route: 042
  8. RITUXIMAB [Suspect]
     Active Substance: RITUXIMAB
  9. IFOSFAMIDE [Suspect]
     Active Substance: IFOSFAMIDE
     Indication: B-cell lymphoma
  10. IFOSFAMIDE [Suspect]
     Active Substance: IFOSFAMIDE
     Route: 042
  11. IFOSFAMIDE [Suspect]
     Active Substance: IFOSFAMIDE
     Route: 042
  12. IFOSFAMIDE [Suspect]
     Active Substance: IFOSFAMIDE

REACTIONS (1)
  - Cardiac failure [Not Recovered/Not Resolved]

NARRATIVE: CASE EVENT DATE: 20250413
